FAERS Safety Report 6435705-4 (Version None)
Quarter: 2009Q4

REPORT INFORMATION
  Report Type: 
  Country: None (occurrence: None)
  Receive Date: 20091111
  Receipt Date: 20091110
  Transmission Date: 20100525
  Serious: No
  Sender: FDA-Public Use
  Company Number: US-BAYER-200916303BCC

PATIENT
  Age: 37 Year
  Sex: Female

DRUGS (1)
  1. DESONATE GEL [Suspect]
     Indication: SEBORRHOEA
     Dosage: MIDDLE OF HER NOSE, TEMPLES, BROWN AREA AND THE AREA BELOW HER EYES
     Route: 061
     Dates: start: 20070703

REACTIONS (1)
  - VASODILATATION [None]
